FAERS Safety Report 8025433-6 (Version None)
Quarter: 2012Q1

REPORT INFORMATION
  Report Type: 
  Country: None (occurrence: None)
  Receive Date: 20120105
  Receipt Date: 20111227
  Transmission Date: 20120608
  Serious: Yes (Other)
  Sender: FDA-Public Use
  Company Number: US-ELI_LILLY_AND_COMPANY-US201201000613

PATIENT
  Sex: Female

DRUGS (3)
  1. FORTEO [Suspect]
     Indication: OSTEOPOROSIS
     Dosage: 20 UG, QD
  2. SYNTHROID [Concomitant]
     Dosage: UNK, QD
  3. VITAMIN TAB [Concomitant]
     Dosage: UNK, QD

REACTIONS (4)
  - ATRIAL FIBRILLATION [None]
  - FALL [None]
  - HEART VALVE INCOMPETENCE [None]
  - THYROID DISORDER [None]
